FAERS Safety Report 9414974 (Version 1)
Quarter: 2013Q3

REPORT INFORMATION
  Report Type: Spontaneous
  Country: US (occurrence: US)
  Receive Date: 20130723
  Receipt Date: 20130723
  Transmission Date: 20140515
  Serious: Yes (Other)
  Sender: FDA-Public Use
  Company Number: PHHY2013US075381

PATIENT
  Age: 67 Year
  Sex: Male

DRUGS (6)
  1. RISPERIDONE [Suspect]
     Indication: AGGRESSION
     Dosage: 0.5 MG, UNK
  2. QUETIAPINE [Concomitant]
     Dosage: 800 MG, QD
  3. TRAZODONE [Concomitant]
  4. MELATONIN [Concomitant]
  5. SIMVASTATIN [Concomitant]
     Indication: HYPERLIPIDAEMIA
  6. TEMAZEPAM [Concomitant]

REACTIONS (3)
  - Pleurothotonus [Recovered/Resolved]
  - Akathisia [Recovered/Resolved]
  - Aggression [Recovered/Resolved]
